FAERS Safety Report 20376612 (Version 5)
Quarter: 2022Q4

REPORT INFORMATION
  Report Type: Report from Study
  Country: FR (occurrence: None)
  Receive Date: 20220125
  Receipt Date: 20221107
  Transmission Date: 20230113
  Serious: Yes (Death, Life-Threatening, Hospitalization, Other)
  Sender: FDA-Public Use
  Company Number: 2021A844222

PATIENT
  Age: 81 Year
  Sex: Male

DRUGS (6)
  1. CERALASERTIB [Suspect]
     Active Substance: CERALASERTIB
     Indication: Non-small cell lung cancer
     Route: 048
     Dates: start: 20210916, end: 20210929
  2. CERALASERTIB [Suspect]
     Active Substance: CERALASERTIB
     Indication: Non-small cell lung cancer
     Route: 048
     Dates: start: 20211013, end: 20211026
  3. CERALASERTIB [Suspect]
     Active Substance: CERALASERTIB
     Indication: Non-small cell lung cancer
     Route: 048
     Dates: start: 20211121, end: 20211121
  4. DURVALUMAB [Suspect]
     Active Substance: DURVALUMAB
     Indication: Non-small cell lung cancer
     Dosage: 1500.0MG ONCE/SINGLE ADMINISTRATION
     Route: 042
     Dates: start: 20210831, end: 20210831
  5. DURVALUMAB [Suspect]
     Active Substance: DURVALUMAB
     Indication: Non-small cell lung cancer
     Dosage: 1500.0MG ONCE/SINGLE ADMINISTRATION
     Route: 042
     Dates: start: 20210930, end: 20210930
  6. DURVALUMAB [Suspect]
     Active Substance: DURVALUMAB
     Indication: Non-small cell lung cancer
     Dosage: 1500.0MG ONCE/SINGLE ADMINISTRATION
     Route: 042
     Dates: start: 20211027, end: 20211027

REACTIONS (3)
  - Pancytopenia [Fatal]
  - Infection [Fatal]
  - Pulmonary embolism [Fatal]

NARRATIVE: CASE EVENT DATE: 20211117
